FAERS Safety Report 5502653-3 (Version None)
Quarter: 2007Q4

REPORT INFORMATION
  Report Type: 
  Country: None (occurrence: None)
  Receive Date: 20071031
  Receipt Date: 20071026
  Transmission Date: 20080405
  Serious: Yes (Death, Life-Threatening)
  Sender: FDA-Public Use
  Company Number: GB-BAYER-200711127BNE

PATIENT
  Age: 76 Year
  Sex: Male
  Weight: 70 kg

DRUGS (9)
  1. CIPROFLOXACIN [Suspect]
     Dosage: TOTAL DAILY DOSE: 500 MG
  2. CARBOPLATIN [Suspect]
     Indication: SMALL CELL LUNG CANCER STAGE UNSPECIFIED
     Route: 042
     Dates: start: 20060125, end: 20060125
  3. CLARITHROMYCIN [Suspect]
     Dosage: TOTAL DAILY DOSE: 500 MG
  4. ETOPOSIDE [Suspect]
     Indication: SMALL CELL LUNG CANCER STAGE UNSPECIFIED
     Route: 042
     Dates: start: 20060125, end: 20060127
  5. BISOPROLOL FUMARATE [Concomitant]
     Route: 048
  6. AMOXICILLIN + CLAVULANATE POTASSIUM [Concomitant]
  7. DEXAMETHASONE 0.5MG TAB [Concomitant]
  8. DOMPERIDONE [Concomitant]
  9. OMEPRAZOLE [Concomitant]
     Route: 048

REACTIONS (1)
  - CLOSTRIDIUM DIFFICILE SEPSIS [None]
